FAERS Safety Report 4895216-4 (Version None)
Quarter: 2006Q1

REPORT INFORMATION
  Report Type: 
  Country: None (occurrence: None)
  Receive Date: 20060125
  Receipt Date: 20060117
  Transmission Date: 20060701
  Serious: Yes (Other)
  Sender: FDA-Public Use
  Company Number: 2006007213

PATIENT
  Sex: Male

DRUGS (4)
  1. ALDACTONE [Suspect]
     Indication: HYPERTENSION
     Dates: start: 20050901
  2. LASIX [Suspect]
     Indication: ILL-DEFINED DISORDER
     Dates: start: 20050901
  3. ANTI-TUMOR NECROSIS FACTOR UNSPECIFIED (IMMUNOSTIMULANTS) [Concomitant]
  4. TEMOCAPRIL HYDROCHLORIDE (TEMOCAPRIL HYDROCHLORIDE) [Concomitant]

REACTIONS (1)
  - PANCREATITIS ACUTE [None]
